FAERS Safety Report 6658009-3 (Version None)
Quarter: 2010Q1

REPORT INFORMATION
  Report Type: 
  Country: None (occurrence: None)
  Receive Date: 20100330
  Receipt Date: 20100318
  Transmission Date: 20100710
  Serious: Yes (Other)
  Sender: FDA-Public Use
  Company Number: US-ELI_LILLY_AND_COMPANY-US201003004917

PATIENT
  Sex: Female

DRUGS (1)
  1. BYETTA [Suspect]
     Route: 058

REACTIONS (5)
  - ASTHMA [None]
  - DYSPNOEA [None]
  - FEELING ABNORMAL [None]
  - NEPHROLITHIASIS [None]
  - WEIGHT INCREASED [None]
